FAERS Safety Report 22593932 (Version 3)
Quarter: 2024Q2

REPORT INFORMATION
  Report Type: Spontaneous
  Country: JP (occurrence: JP)
  Receive Date: 20230613
  Receipt Date: 20240530
  Transmission Date: 20240716
  Serious: Yes (Hospitalization, Other)
  Sender: FDA-Public Use
  Company Number: JP-ONO-2023JP014595

PATIENT
  Age: 71 Year
  Sex: Male

DRUGS (5)
  1. OPDIVO [Suspect]
     Active Substance: NIVOLUMAB
     Indication: Gastric cancer
     Dosage: UNK
     Route: 041
  2. PACLITAXEL [Suspect]
     Active Substance: PACLITAXEL
     Indication: Gastric cancer
     Dosage: UNK
  3. RAMUCIRUMAB [Suspect]
     Active Substance: RAMUCIRUMAB
     Indication: Gastric cancer
     Dosage: UNK
  4. GIMERACIL\OTERACIL\TEGAFUR [Suspect]
     Active Substance: GIMERACIL\OTERACIL POTASSIUM\TEGAFUR
     Indication: Gastric cancer
     Dosage: UNK
  5. OXALIPLATIN [Suspect]
     Active Substance: OXALIPLATIN

REACTIONS (5)
  - Hand-foot-and-mouth disease [Unknown]
  - Pemphigoid [Recovered/Resolved]
  - Diarrhoea [Recovering/Resolving]
  - Neutrophil count decreased [Unknown]
  - Hypothyroidism [Unknown]
